FAERS Safety Report 26206402 (Version 1)
Quarter: 2025Q4

REPORT INFORMATION
  Report Type: Spontaneous
  Country: CN (occurrence: CN)
  Receive Date: 20251229
  Receipt Date: 20251229
  Transmission Date: 20260117
  Serious: Yes (Death, Other)
  Sender: DR REDDYS
  Company Number: CN-CHN-CHN/2025/12/020035

PATIENT
  Age: 73 Year
  Sex: Female

DRUGS (5)
  1. LENALIDOMIDE [Suspect]
     Active Substance: LENALIDOMIDE
     Indication: POEMS syndrome
     Dosage: ONCE A DAY
     Route: 048
     Dates: start: 20220318, end: 20220322
  2. LENALIDOMIDE [Suspect]
     Active Substance: LENALIDOMIDE
     Dosage: EVERY OTHER DAY
     Route: 048
     Dates: start: 20220323, end: 20220330
  3. DEXAMETHASONE [Concomitant]
     Active Substance: DEXAMETHASONE
     Indication: POEMS syndrome
     Route: 042
     Dates: start: 20220318
  4. OMEPRAZOLE [Concomitant]
     Active Substance: OMEPRAZOLE
     Indication: POEMS syndrome
     Route: 048
     Dates: start: 20220318
  5. ASPIRIN [Concomitant]
     Active Substance: ASPIRIN
     Indication: POEMS syndrome
     Dosage: ENTERIC COATED
     Route: 048
     Dates: start: 20220318, end: 20220330

REACTIONS (1)
  - Thrombotic microangiopathy [Fatal]

NARRATIVE: CASE EVENT DATE: 20220330
